FAERS Safety Report 10969157 (Version 1)
Quarter: 2015Q1

REPORT INFORMATION
  Report Type: Report from Study
  Country: DE (occurrence: DE)
  Receive Date: 20150331
  Receipt Date: 20150331
  Transmission Date: 20150721
  Serious: Yes (Death)
  Sender: FDA-Public Use
  Company Number: DE-ROCHE-1546845

PATIENT
  Age: 90 Year
  Sex: Female
  Weight: 54 kg

DRUGS (2)
  1. RANIBIZUMAB [Suspect]
     Active Substance: RANIBIZUMAB
     Dosage: SHE WAS RECEIVED LAST DOSE OF RANIBIZUMAB INJECTION ON 04/AUG/2014
     Route: 050
     Dates: start: 20140804, end: 20140804
  2. RANIBIZUMAB [Suspect]
     Active Substance: RANIBIZUMAB
     Indication: AGE-RELATED MACULAR DEGENERATION
     Dosage: SHE WAS RECEIVED LAST DOSE OF RANIBIZUMAB INJECTION ON 04/AUG/2014
     Route: 050
     Dates: start: 20120912, end: 20140804

REACTIONS (2)
  - Retinal cyst [Unknown]
  - Death [Fatal]

NARRATIVE: CASE EVENT DATE: 20131209
